FAERS Safety Report 7238010-1 (Version None)
Quarter: 2011Q1

REPORT INFORMATION
  Report Type: 
  Country: None (occurrence: None)
  Receive Date: 20110121
  Receipt Date: 20110114
  Transmission Date: 20110831
  Serious: Yes (Hospitalization)
  Sender: FDA-Public Use
  Company Number: A0887483A

PATIENT
  Age: 56 Year
  Sex: Female

DRUGS (2)
  1. ADVAIR [Suspect]
     Indication: ASTHMA
  2. VENTOLIN [Suspect]
     Route: 065
     Dates: start: 20081226

REACTIONS (5)
  - STENT PLACEMENT [None]
  - LUNG DISORDER [None]
  - MYOCARDIAL INFARCTION [None]
  - RESPIRATORY GAS EXCHANGE DISORDER [None]
  - HYPERSENSITIVITY [None]
